FAERS Safety Report 7960594-6 (Version None)
Quarter: 2011Q4

REPORT INFORMATION
  Report Type: 
  Country: None (occurrence: None)
  Receive Date: 20111206
  Receipt Date: 20111128
  Transmission Date: 20120403
  Serious: Yes (Hospitalization, Other)
  Sender: FDA-Public Use
  Company Number: US-RB-035106-11

PATIENT
  Sex: Female

DRUGS (8)
  1. SUBOXONE [Suspect]
     Indication: DRUG DEPENDENCE
     Dosage: TAPER TO 8 MG DAILY
     Route: 060
     Dates: end: 20111114
  2. AMBIEN [Concomitant]
     Indication: INSOMNIA
     Dosage: UNKNOWN DOSING REGIMEN
     Route: 065
  3. LYRICA [Concomitant]
     Indication: NERVE INJURY
     Dosage: UNKNOWN DOSING REGIMEN
     Route: 065
  4. GABAPENTIN [Concomitant]
     Indication: BACK DISORDER
     Dosage: UNKNOWN DOSING REGIMEN
     Route: 065
  5. SOMA [Concomitant]
     Indication: MUSCLE TIGHTNESS
     Dosage: UNKNOWN DOSING REGIMEN
     Route: 065
  6. GABAPENTIN [Concomitant]
     Dosage: UNKNOWN DOSING REGIMEN
     Route: 065
  7. SUBOXONE [Suspect]
     Dosage: 24 MG DAILY
     Route: 060
     Dates: start: 20101001
  8. LYRICA [Concomitant]
     Indication: BACK DISORDER
     Dosage: UNKNOWN DOSING REGIMEN
     Route: 065

REACTIONS (6)
  - MEMORY IMPAIRMENT [None]
  - PROCEDURAL PAIN [None]
  - LUNG INFILTRATION [None]
  - HYPONATRAEMIA [None]
  - FALL [None]
  - BLOOD POTASSIUM DECREASED [None]
